FAERS Safety Report 13139833 (Version 1)
Quarter: 2017Q1

REPORT INFORMATION
  Report Type: Spontaneous
  Country: IT (occurrence: IT)
  Receive Date: 20170123
  Receipt Date: 20170123
  Transmission Date: 20170428
  Serious: Yes (Other)
  Sender: FDA-Public Use
  Company Number: IT-MYLANLABS-2017M1002974

PATIENT

DRUGS (2)
  1. PACLITAXEL. [Suspect]
     Active Substance: PACLITAXEL
     Indication: BRENNER TUMOUR
     Route: 065
  2. CARBOPLATIN. [Suspect]
     Active Substance: CARBOPLATIN
     Indication: BRENNER TUMOUR
     Route: 065

REACTIONS (5)
  - Pruritus [Unknown]
  - Neutropenia [Unknown]
  - Jaundice [Unknown]
  - Total bile acids increased [Unknown]
  - Hepatic enzyme increased [Unknown]
